FAERS Safety Report 6897243-4 (Version None)
Quarter: 2010Q3

REPORT INFORMATION
  Report Type: 
  Country: None (occurrence: None)
  Receive Date: 20100802
  Receipt Date: 20070418
  Transmission Date: 20110219
  Serious: No
  Sender: FDA-Public Use
  Company Number: US-PFIZER INC-2007031758

PATIENT
  Sex: Male

DRUGS (3)
  1. LYRICA [Suspect]
     Indication: MUSCLE SPASMS
     Dates: start: 20070410
  2. MORPHINE [Concomitant]
  3. CLONIDINE [Concomitant]

REACTIONS (2)
  - FLANK PAIN [None]
  - MEDICATION ERROR [None]
